FAERS Safety Report 11937890 (Version 1)
Quarter: 2016Q1

REPORT INFORMATION
  Report Type: Spontaneous
  Country: US (occurrence: US)
  Receive Date: 20160122
  Receipt Date: 20160122
  Transmission Date: 20160526
  Serious: Yes (Death)
  Sender: FDA-Public Use
  Company Number: US-BEH-2016057820

PATIENT
  Age: 74 Year
  Sex: Male
  Weight: 86 kg

DRUGS (27)
  1. ZEMAIRA [Suspect]
     Active Substance: .ALPHA.1-PROTEINASE INHIBITOR HUMAN
     Indication: OBSTRUCTIVE AIRWAYS DISORDER
     Route: 042
  2. CIALIS [Concomitant]
     Active Substance: TADALAFIL
  3. POTASSIUM CL ER [Concomitant]
     Active Substance: POTASSIUM CHLORIDE
  4. LORATADINE. [Concomitant]
     Active Substance: LORATADINE
  5. VITAMIN D [Concomitant]
     Active Substance: CHOLECALCIFEROL
  6. CIPRO [Concomitant]
     Active Substance: CIPROFLOXACIN HYDROCHLORIDE
  7. GLUCOSAMINE CHONDROITIN [Concomitant]
     Active Substance: CHONDROITIN SULFATE (BOVINE)\GLUCOSAMINE HYDROCHLORIDE
  8. SINGULAIR [Concomitant]
     Active Substance: MONTELUKAST SODIUM
  9. LASIX [Concomitant]
     Active Substance: FUROSEMIDE
  10. NYSTATIN. [Concomitant]
     Active Substance: NYSTATIN
  11. PREDNISONE. [Concomitant]
     Active Substance: PREDNISONE
  12. ASTELIN [Concomitant]
     Active Substance: AZELASTINE HYDROCHLORIDE
  13. CITRACAL VITAMIN D [Concomitant]
  14. SPIRONOLACTONE. [Concomitant]
     Active Substance: SPIRONOLACTONE
  15. RAMIPRIL. [Concomitant]
     Active Substance: RAMIPRIL
  16. OXYGEN. [Concomitant]
     Active Substance: OXYGEN
  17. MAGNESIUM [Concomitant]
     Active Substance: MAGNESIUM
  18. GUAIFENESIN. [Concomitant]
     Active Substance: GUAIFENESIN
  19. FLUOROURACIL. [Concomitant]
     Active Substance: FLUOROURACIL
  20. FLOMAX [Concomitant]
     Active Substance: TAMSULOSIN HYDROCHLORIDE
  21. AVODART [Concomitant]
     Active Substance: DUTASTERIDE
  22. XOPENEX [Concomitant]
     Active Substance: LEVALBUTEROL HYDROCHLORIDE
  23. ZEMAIRA [Suspect]
     Active Substance: .ALPHA.1-PROTEINASE INHIBITOR HUMAN
     Indication: ALPHA-1 ANTI-TRYPSIN DEFICIENCY
     Route: 042
  24. LACTULOSE. [Concomitant]
     Active Substance: LACTULOSE
  25. QUINIDINE SULFATE. [Concomitant]
     Active Substance: QUINIDINE SULFATE
  26. VITAMIN B12 [Concomitant]
     Active Substance: CYANOCOBALAMIN
  27. DAILY MULTIVITAMIN [Concomitant]
     Active Substance: VITAMINS

REACTIONS (1)
  - Death [Fatal]

NARRATIVE: CASE EVENT DATE: 20160109
